FAERS Safety Report 7012955-X (Version None)
Quarter: 2010Q3

REPORT INFORMATION
  Report Type: 
  Country: None (occurrence: None)
  Receive Date: 20100915
  Receipt Date: 20091106
  Transmission Date: 20110219
  Serious: Yes (Other)
  Sender: FDA-Public Use
  Company Number: US-WYE-H12086709

PATIENT
  Age: 67 Year
  Sex: Female
  Weight: 60.84 kg

DRUGS (4)
  1. ADVIL [Suspect]
     Indication: ARTHRALGIA
     Dosage: 1 CAPSULE AS NEEDED, ORAL
     Route: 048
     Dates: start: 20080101, end: 20081105
  2. ZOCOR [Concomitant]
  3. OMEPRAZOLE [Concomitant]
  4. FOSAMAX [Concomitant]

REACTIONS (2)
  - ARTERIOSPASM CORONARY [None]
  - CHEST PAIN [None]
